FAERS Safety Report 9855420 (Version 3)
Quarter: 2014Q4

REPORT INFORMATION
  Report Type: Spontaneous
  Country: US (occurrence: US)
  Receive Date: 20140130
  Receipt Date: 20141031
  Transmission Date: 20150529
  Serious: Yes (Hospitalization)
  Sender: FDA-Public Use
  Company Number: US-BAYER-2014-012293

PATIENT
  Age: 33 Year
  Sex: Female
  Weight: 77 kg

DRUGS (5)
  1. MIRENA [Suspect]
     Active Substance: LEVONORGESTREL
     Indication: CONTRACEPTION
     Dosage: 20 MCG/24HR, CONT
     Route: 015
     Dates: start: 20060823, end: 20100921
  2. CITALOPRAM [Concomitant]
     Active Substance: CITALOPRAM HYDROBROMIDE
     Indication: ANTIPHOSPHOLIPID ANTIBODIES POSITIVE
     Dosage: UNK
     Dates: start: 2006
  3. VALTREX [Concomitant]
     Active Substance: VALACYCLOVIR HYDROCHLORIDE
     Indication: HERPES VIRUS INFECTION
     Dosage: UNK
     Dates: start: 2005
  4. OXYCODONE [Concomitant]
     Active Substance: OXYCODONE
     Indication: PAIN
     Dosage: UNK
     Dates: start: 2008
  5. BENICAR [Concomitant]
     Active Substance: OLMESARTAN MEDOXOMIL
     Indication: BLOOD PRESSURE MANAGEMENT
     Dosage: UNK
     Dates: start: 2009, end: 201406

REACTIONS (6)
  - Injury [None]
  - Medical device discomfort [None]
  - Pregnancy with contraceptive device [None]
  - Medical device pain [None]
  - Embedded device [None]
  - Drug ineffective [None]

NARRATIVE: CASE EVENT DATE: 2010
